FAERS Safety Report 9289877 (Version 3)
Quarter: 2014Q2

REPORT INFORMATION
  Report Type: Spontaneous
  Country: CN (occurrence: CN)
  Receive Date: 20130515
  Receipt Date: 20140514
  Transmission Date: 20141212
  Serious: Yes (Other)
  Sender: FDA-Public Use
  Company Number: PHHY2013CN047156

PATIENT
  Sex: 0

DRUGS (1)
  1. SANDOSTATIN LAR [Suspect]
     Dosage: 20 MG, EVERY 30 DAYS
     Route: 030
     Dates: start: 20130410, end: 20140419

REACTIONS (2)
  - Coma [Unknown]
  - Hormone level abnormal [Unknown]
